FAERS Safety Report 22136780 (Version 1)
Quarter: 2023Q1

REPORT INFORMATION
  Report Type: Spontaneous
  Country: CN (occurrence: CN)
  Receive Date: 20230324
  Receipt Date: 20230324
  Transmission Date: 20230417
  Serious: Yes (Hospitalization, Other)
  Sender: FDA-Public Use
  Company Number: CN-ORGANON-O2303CHN002174

PATIENT
  Age: 27 Year
  Sex: Female
  Weight: 55.9 kg

DRUGS (8)
  1. FOLLITROPIN BETA [Suspect]
     Active Substance: FOLLITROPIN BETA
     Indication: Ovulation induction
     Dosage: 120IU, QD  (STRENGTH: 600IU/0.72ML   )
     Route: 058
     Dates: start: 20230214, end: 20230218
  2. FOLLITROPIN BETA [Suspect]
     Active Substance: FOLLITROPIN BETA
  3. FOLLITROPIN BETA [Suspect]
     Active Substance: FOLLITROPIN BETA
     Indication: Ovulation induction
     Dosage: 150IU, QD (STRENGTH: 600IU/0.72ML   )
     Route: 058
     Dates: start: 20230219, end: 20230224
  4. MENOTROPINS [Suspect]
     Active Substance: MENOTROPINS
     Indication: Ovulation induction
     Dosage: 75IU, QD
     Route: 030
     Dates: start: 20230214, end: 20230301
  5. CHORIONIC GONADOTROPHIN [Suspect]
     Active Substance: CHORIOGONADOTROPIN ALFA
     Indication: Ovulation induction
     Dosage: 10000IU, QD
     Route: 030
     Dates: start: 20230301, end: 20230301
  6. LUTROPIN ALFA [Suspect]
     Active Substance: LUTROPIN ALFA
     Indication: Ovulation induction
     Dosage: 75IU, QD
     Route: 058
     Dates: start: 20230223, end: 20230228
  7. SODIUM CHLORIDE [Concomitant]
     Active Substance: SODIUM CHLORIDE
     Indication: Medication dilution
     Dosage: 2ML, QD
     Route: 030
     Dates: start: 20230214, end: 20230301
  8. SODIUM CHLORIDE [Concomitant]
     Active Substance: SODIUM CHLORIDE
     Dosage: 2ML, QD
     Route: 030
     Dates: start: 20230301, end: 20230301

REACTIONS (5)
  - Ovarian hyperstimulation syndrome [Recovering/Resolving]
  - Abdominal distension [Recovering/Resolving]
  - Abdominal pain [Recovering/Resolving]
  - Nausea [Recovering/Resolving]
  - Retching [Recovering/Resolving]

NARRATIVE: CASE EVENT DATE: 20230305
